FAERS Safety Report 22053469 (Version 1)
Quarter: 2023Q1

REPORT INFORMATION
  Report Type: Spontaneous
  Country: US (occurrence: None)
  Receive Date: 20230301
  Receipt Date: 20230301
  Transmission Date: 20230417
  Serious: Yes (Other)
  Sender: FDA-Public Use
  Company Number: None

PATIENT
  Age: 67 Year
  Sex: Male
  Weight: 114.6 kg

DRUGS (1)
  1. AMIVANTAMAB [Suspect]
     Active Substance: AMIVANTAMAB
     Indication: Colon cancer metastatic
     Dosage: OTHER FREQUENCY : WEEKLY;?
     Route: 042
     Dates: start: 20230223

REACTIONS (5)
  - Chest pain [None]
  - Chest discomfort [None]
  - Dyspnoea [None]
  - Infusion related reaction [None]
  - Paraesthesia [None]

NARRATIVE: CASE EVENT DATE: 20230223
